FAERS Safety Report 7571577-2 (Version None)
Quarter: 2011Q2

REPORT INFORMATION
  Report Type: 
  Country: None (occurrence: None)
  Receive Date: 20110624
  Receipt Date: 20110620
  Transmission Date: 20111010
  Serious: Yes (Other)
  Sender: FDA-Public Use
  Company Number: US-BRISTOL-MYERS SQUIBB COMPANY-15843105

PATIENT
  Age: 81 Year
  Sex: Female

DRUGS (4)
  1. TAXOL [Suspect]
     Indication: BREAST CANCER
     Dosage: BIWEEKLY; 3 CYC
  2. CYTOXAN [Suspect]
     Dosage: 3 CYC
  3. ADRIAMYCIN PFS [Suspect]
  4. ARIMIDEX [Concomitant]

REACTIONS (4)
  - MOBILITY DECREASED [None]
  - BALANCE DISORDER [None]
  - NEUROPATHY PERIPHERAL [None]
  - FALL [None]
